FAERS Safety Report 5930107-9 (Version None)
Quarter: 2008Q4

REPORT INFORMATION
  Report Type: 
  Country: None (occurrence: None)
  Receive Date: 20081024
  Receipt Date: 20081020
  Transmission Date: 20090506
  Serious: No
  Sender: FDA-Public Use
  Company Number: US-B.I. PHARMACEUTICALS,INC./RIDGEFIELD-2008-BP-16054BP

PATIENT
  Age: 89 Year
  Sex: Male

DRUGS (7)
  1. FLOMAX [Suspect]
     Indication: INCONTINENCE
     Dosage: .4MG
     Route: 048
     Dates: start: 20080801, end: 20081019
  2. FLOMAX [Suspect]
     Indication: MICTURITION URGENCY
  3. DIGITEK [Concomitant]
     Indication: CORONARY ARTERY BYPASS
  4. ENALAPRIL MALEATE [Concomitant]
     Indication: HYPERTENSION
  5. METOPROLOL TARTRATE [Concomitant]
     Indication: HYPERTENSION
  6. DYAZIDE [Concomitant]
     Indication: CORONARY ARTERY BYPASS
  7. ASPIRIN [Concomitant]
     Indication: CORONARY ARTERY BYPASS

REACTIONS (2)
  - PRURITUS [None]
  - RASH [None]
